FAERS Safety Report 11183648 (Version 1)
Quarter: 2015Q2

REPORT INFORMATION
  Report Type: Spontaneous
  Country: RU (occurrence: RU)
  Receive Date: 20150612
  Receipt Date: 20150612
  Transmission Date: 20150821
  Serious: Yes (Other)
  Sender: FDA-Public Use
  Company Number: RU-ASTRAZENECA-2015SE55257

PATIENT
  Age: 922 Month
  Sex: Female

DRUGS (3)
  1. SIOFOR [Concomitant]
     Active Substance: METFORMIN HYDROCHLORIDE
     Dosage: 850
  2. DOPPELHERZ [Concomitant]
  3. ONGLYZA [Suspect]
     Active Substance: SAXAGLIPTIN HYDROCHLORIDE
     Indication: TYPE 2 DIABETES MELLITUS
     Route: 048

REACTIONS (3)
  - Cataract [Unknown]
  - Drug ineffective [Not Recovered/Not Resolved]
  - Blood glucose increased [Unknown]

NARRATIVE: CASE EVENT DATE: 201502
